FAERS Safety Report 8506769-9 (Version None)
Quarter: 2012Q3

REPORT INFORMATION
  Report Type: 
  Country: None (occurrence: None)
  Receive Date: 20120712
  Receipt Date: 20120705
  Transmission Date: 20120928
  Serious: Yes (Other)
  Sender: FDA-Public Use
  Company Number: US-PFIZER INC-2012162179

PATIENT
  Sex: Male
  Weight: 125 kg

DRUGS (7)
  1. POTASSIUM CHLORIDE [Concomitant]
     Indication: DIURETIC THERAPY
     Dosage: 10 MEQ, 3X/DAY, ONE IN THE MORNING AND TWO AT NIGHT
  2. ALLOPURINOL [Concomitant]
     Indication: GOUT
     Dosage: 300 MG, DAILY
  3. LIPITOR [Concomitant]
     Dosage: 20 MG, DAILY
  4. FUROSEMIDE [Concomitant]
     Dosage: 80 MG, DAILY
  5. TRAZODONE [Concomitant]
     Dosage: 50 MG, DAILY
  6. REVATIO [Suspect]
     Indication: IDIOPATHIC PULMONARY FIBROSIS
     Dosage: 20 MG, 2X/DAY
     Route: 048
     Dates: start: 20110101
  7. ZOLOFT [Concomitant]
     Dosage: 100 MG, DAILY

REACTIONS (2)
  - WEIGHT INCREASED [None]
  - OEDEMA PERIPHERAL [None]
